FAERS Safety Report 16125183 (Version 1)
Quarter: 2019Q1

REPORT INFORMATION
  Report Type: Spontaneous
  Country: US (occurrence: US)
  Receive Date: 20190327
  Receipt Date: 20190327
  Transmission Date: 20190418
  Serious: No
  Sender: FDA-Public Use
  Company Number: US-009507513-1903USA011531

PATIENT
  Age: 35 Year
  Sex: Male

DRUGS (2)
  1. ATRIPLA [Concomitant]
     Active Substance: EFAVIRENZ\EMTRICITABINE\TENOFOVIR DISOPROXIL FUMARATE
     Dosage: UNK
     Dates: start: 2008
  2. ISENTRESS [Suspect]
     Active Substance: RALTEGRAVIR POTASSIUM
     Indication: CD4 LYMPHOCYTES INCREASED
     Dosage: 400 MILLIGRAM, QD
     Route: 048
     Dates: end: 2016

REACTIONS (2)
  - Underdose [Unknown]
  - Off label use [Unknown]
